FAERS Safety Report 7030363-2 (Version None)
Quarter: 2010Q4

REPORT INFORMATION
  Report Type: 
  Country: None (occurrence: None)
  Receive Date: 20101006
  Receipt Date: 20100929
  Transmission Date: 20110411
  Serious: Yes (Hospitalization)
  Sender: FDA-Public Use
  Company Number: DE-SANOFI-AVENTIS-2010SA059166

PATIENT
  Sex: Male

DRUGS (2)
  1. JEVTANA KIT [Suspect]
     Route: 041
     Dates: start: 20100810, end: 20100810
  2. JEVTANA KIT [Suspect]
     Route: 041
     Dates: start: 20100830, end: 20100830

REACTIONS (1)
  - CARDIAC DISORDER [None]
